FAERS Safety Report 21496630 (Version 1)
Quarter: 2022Q4

REPORT INFORMATION
  Report Type: Spontaneous
  Country: DE (occurrence: DE)
  Receive Date: 20221022
  Receipt Date: 20221022
  Transmission Date: 20230112
  Serious: Yes (Life-Threatening, Congenital Anomaly, Other)
  Sender: FDA-Public Use
  Company Number: None

PATIENT
  Age: 1 Day
  Sex: Male
  Weight: 3 kg

DRUGS (5)
  1. AMLODIPINE\HYDROCHLOROTHIAZIDE\VALSARTAN [Suspect]
     Active Substance: AMLODIPINE\HYDROCHLOROTHIAZIDE\VALSARTAN
     Indication: Accidental exposure to product
     Dosage: CONFUSION WITH OTHER DRUG
     Route: 064
  2. AMLODIPIN/VALSARTAN/HYDROCHLOROTHIAZID [Concomitant]
     Indication: Hypertension
     Dosage: 5 [MG/D ] / 160 [MG/D ] / 12.5 [MG/D ]
     Route: 064
  3. METHYLDOPA [Concomitant]
     Active Substance: METHYLDOPA
     Indication: Hypertension
     Dosage: 500 [MG/D (2X250) ]
     Route: 064
     Dates: start: 20210330, end: 20210415
  4. METOPROLOL [Concomitant]
     Active Substance: METOPROLOL
     Indication: Hypertension
     Dosage: 95 [MG/D ] 2 SEPARATED DOSES
     Route: 064
     Dates: start: 20200731, end: 20210223
  5. XIPAMIDE [Concomitant]
     Active Substance: XIPAMIDE
     Indication: Hypertension
     Dosage: 10 [MG/D ]
     Route: 064
     Dates: start: 20200731, end: 20210404

REACTIONS (3)
  - Congenital renal disorder [Not Recovered/Not Resolved]
  - Foetal exposure during pregnancy [Unknown]
  - Product confusion [Unknown]

NARRATIVE: CASE EVENT DATE: 20210401
